FAERS Safety Report 4612900-8 (Version None)
Quarter: 2005Q1

REPORT INFORMATION
  Report Type: 
  Country: None (occurrence: None)
  Receive Date: 20050318
  Receipt Date: 20050222
  Transmission Date: 20050727
  Serious: Yes (Disabling)
  Sender: FDA-Public Use
  Company Number: CN-GLAXOSMITHKLINE-B0373241A

PATIENT
  Age: 3 Month
  Sex: Male

DRUGS (5)
  1. VENTOLIN HFA [Suspect]
     Indication: BRONCHITIS
     Dates: start: 20050217, end: 20050220
  2. ANTIBIOTICS [Concomitant]
  3. DEXAMETHASONE [Concomitant]
  4. MUCOSOLVAN [Concomitant]
  5. RIBAVIRIN [Concomitant]

REACTIONS (1)
  - VISUAL ACUITY REDUCED [None]
